FAERS Safety Report 11574646 (Version 1)
Quarter: 2015Q3

REPORT INFORMATION
  Report Type: Spontaneous
  Country: US (occurrence: None)
  Receive Date: 20150929
  Receipt Date: 20150929
  Transmission Date: 20151125
  Serious: Yes (Other)
  Sender: FDA-Public Use
  Company Number: None

PATIENT
  Age: 72 Year
  Sex: Female
  Weight: 65.32 kg

DRUGS (7)
  1. VIT -D [Concomitant]
  2. MAGANE [Concomitant]
  3. BENZTROPINE [Suspect]
     Active Substance: BENZTROPINE
     Indication: MENTAL DISORDER
     Route: 048
     Dates: end: 20150918
  4. IRON [Concomitant]
     Active Substance: IRON
  5. CALCIUM [Concomitant]
     Active Substance: CALCIUM
  6. TRIFLUOPERAZINE [Suspect]
     Active Substance: TRIFLUOPERAZINE\TRIFLUOPERAZINE HYDROCHLORIDE
  7. QUETIAPINE FUMARATE. [Suspect]
     Active Substance: QUETIAPINE FUMARATE
     Indication: MENTAL DISORDER
     Route: 048
     Dates: end: 20150918

REACTIONS (3)
  - Pruritus [None]
  - Nervousness [None]
  - Rash [None]

NARRATIVE: CASE EVENT DATE: 20150901
